FAERS Safety Report 10052144 (Version 1)
Quarter: 2014Q2

REPORT INFORMATION
  Report Type: Spontaneous
  Country: AU (occurrence: AU)
  Receive Date: 20140402
  Receipt Date: 20140402
  Transmission Date: 20141212
  Serious: Yes (Hospitalization)
  Sender: FDA-Public Use
  Company Number: AU-ASTRAZENECA-2014SE21361

PATIENT
  Age: 44 Year
  Sex: Female

DRUGS (1)
  1. SEROQUEL [Suspect]
     Route: 048
     Dates: start: 20110101, end: 20110630

REACTIONS (6)
  - Aphasia [Recovered/Resolved]
  - Feeling abnormal [Recovered/Resolved]
  - Urinary incontinence [Recovered/Resolved]
  - Sensory disturbance [Recovered/Resolved]
  - Abasia [Recovered/Resolved]
  - Syncope [Recovered/Resolved]
